FAERS Safety Report 10170361 (Version 2)
Quarter: 2014Q2

REPORT INFORMATION
  Report Type: Spontaneous
  Country: US (occurrence: US)
  Receive Date: 20140513
  Receipt Date: 20140624
  Transmission Date: 20141212
  Serious: Yes (Other)
  Sender: FDA-Public Use
  Company Number: US-TEVA-481135USA

PATIENT
  Sex: Male

DRUGS (2)
  1. BUPRENORPHINE [Suspect]
  2. HEROIN [Concomitant]

REACTIONS (2)
  - Drug abuse [Unknown]
  - Drug abuse [Unknown]
